FAERS Safety Report 10669240 (Version 4)
Quarter: 2015Q1

REPORT INFORMATION
  Report Type: Spontaneous
  Country: RU (occurrence: RU)
  Receive Date: 20141222
  Receipt Date: 20150320
  Transmission Date: 20150720
  Serious: Yes (Hospitalization)
  Sender: FDA-Public Use
  Company Number: RU-NOVOPROD-429385

PATIENT
  Age: 67 Year
  Sex: Female

DRUGS (8)
  1. URSOFALK [Concomitant]
     Active Substance: URSODIOL
     Indication: HEPATIC CIRRHOSIS
     Dosage: 3 CAPS, QD
     Route: 048
  2. NOVORAPID [Suspect]
     Active Substance: INSULIN ASPART
     Dosage: UNK
     Route: 058
  3. LISINOPRIL. [Concomitant]
     Active Substance: LISINOPRIL
     Indication: HYPERTENSION
     Dosage: 10 MG, QD
     Route: 048
  4. NOVORAPID [Suspect]
     Active Substance: INSULIN ASPART
     Dosage: UNK
     Route: 058
  5. LANTUS [Concomitant]
     Active Substance: INSULIN GLARGINE
     Indication: TYPE 2 DIABETES MELLITUS
     Dosage: 68 U, QD
     Route: 058
  6. NOVORAPID [Suspect]
     Active Substance: INSULIN ASPART
     Indication: TYPE 2 DIABETES MELLITUS
     Dosage: 48-54U, QD
     Route: 058
     Dates: start: 2004
  7. SIOFOR [Concomitant]
     Active Substance: METFORMIN HYDROCHLORIDE
     Indication: TYPE 2 DIABETES MELLITUS
     Dosage: 200 MG, QD
     Route: 048
  8. NOVORAPID [Suspect]
     Active Substance: INSULIN ASPART
     Dosage: 36 U, QD (12U+12U+12U)
     Dates: start: 201412

REACTIONS (4)
  - Loss of consciousness [Recovered/Resolved]
  - Device failure [Unknown]
  - Wrong technique in drug usage process [Unknown]
  - Blood glucose increased [Not Recovered/Not Resolved]

NARRATIVE: CASE EVENT DATE: 20141023
